FAERS Safety Report 18440024 (Version 2)
Quarter: 2021Q1

REPORT INFORMATION
  Report Type: Spontaneous
  Country: US (occurrence: US)
  Receive Date: 20201029
  Receipt Date: 20210330
  Transmission Date: 20210419
  Serious: No
  Sender: FDA-Public Use
  Company Number: US-BAYER-2020-229724

PATIENT
  Age: 58 Year
  Sex: Male

DRUGS (4)
  1. CLARITIN [Suspect]
     Active Substance: LORATADINE
     Indication: NASOPHARYNGITIS
  2. CLARITIN [Suspect]
     Active Substance: LORATADINE
     Indication: RHINORRHOEA
  3. CLARITIN [Suspect]
     Active Substance: LORATADINE
     Indication: ALLERGIC RESPIRATORY SYMPTOM
     Route: 048
     Dates: start: 20201022
  4. CLARITIN [Suspect]
     Active Substance: LORATADINE
     Indication: LACRIMATION INCREASED

REACTIONS (2)
  - Lacrimation increased [Unknown]
  - Rhinorrhoea [Unknown]

NARRATIVE: CASE EVENT DATE: 20201022
